FAERS Safety Report 8883791 (Version 1)
Quarter: 2012Q4

REPORT INFORMATION
  Report Type: 
  Country: US (occurrence: US)
  Receive Date: 20121102
  Receipt Date: 20121102
  Transmission Date: 20130627
  Serious: No
  Sender: FDA-Public Use
  Company Number: US-ASTRAZENECA-2012SE07294

PATIENT
  Age: 33 Year
  Sex: Female

DRUGS (2)
  1. CRESTOR [Suspect]
     Route: 048
  2. CHANTIX [Concomitant]

REACTIONS (6)
  - Limb discomfort [Recovering/Resolving]
  - Influenza like illness [Recovering/Resolving]
  - Abdominal distension [Recovering/Resolving]
  - Pain in extremity [Recovering/Resolving]
  - Lethargy [Recovering/Resolving]
  - Fatigue [Recovering/Resolving]
